FAERS Safety Report 12975197 (Version 1)
Quarter: 2016Q4

REPORT INFORMATION
  Report Type: Spontaneous
  Country: US (occurrence: US)
  Receive Date: 20161123
  Receipt Date: 20161123
  Transmission Date: 20170207
  Serious: No
  Sender: FDA-Public Use
  Company Number: None

PATIENT
  Age: 63 Year
  Sex: Female
  Weight: 107.3 kg

DRUGS (15)
  1. CALCITRIOL. [Concomitant]
     Active Substance: CALCITRIOL
  2. FERROUS SULFATE. [Concomitant]
     Active Substance: FERROUS SULFATE
  3. OXYCODONE-ACETAMINOPHEN (PERCOCET) [Concomitant]
  4. ZOCOR [Concomitant]
     Active Substance: SIMVASTATIN
  5. WARFARIN [Suspect]
     Active Substance: WARFARIN
     Indication: PULMONARY EMBOLISM
     Dosage: ?          OTHER FREQUENCY:SEE NARRATIVE;?
     Route: 048
  6. INSULIN ASPART (NOVOLOG) [Concomitant]
  7. MULTIVITAMIN (NEPHRO-VITE RX) [Concomitant]
  8. SEVELAMER (RENVELA) [Concomitant]
  9. WARFARIN [Suspect]
     Active Substance: WARFARIN
     Indication: ATRIAL FIBRILLATION
     Dosage: ?          OTHER FREQUENCY:SEE NARRATIVE;?
     Route: 048
  10. WARFARIN [Suspect]
     Active Substance: WARFARIN
     Indication: DEEP VEIN THROMBOSIS
     Dosage: ?          OTHER FREQUENCY:SEE NARRATIVE;?
     Route: 048
  11. CARVEDILOL (COREG) [Concomitant]
  12. LANTUS [Concomitant]
     Active Substance: INSULIN GLARGINE
  13. CINACALCET [Concomitant]
     Active Substance: CINACALCET
  14. ERGOCALCIFEROL. [Concomitant]
     Active Substance: ERGOCALCIFEROL
  15. MIDODRINE [Concomitant]
     Active Substance: MIDODRINE

REACTIONS (2)
  - International normalised ratio increased [None]
  - Product substitution issue [None]

NARRATIVE: CASE EVENT DATE: 20161025
